FAERS Safety Report 13460653 (Version 3)
Quarter: 2017Q3

REPORT INFORMATION
  Report Type: Spontaneous
  Country: US (occurrence: US)
  Receive Date: 20170420
  Receipt Date: 20170831
  Transmission Date: 20171127
  Serious: No
  Sender: FDA-Public Use
  Company Number: US-BIO PRODUCTS LABORATORY LTD-1065553

PATIENT
  Age: 47 Year
  Sex: Female
  Weight: 119 kg

DRUGS (23)
  1. CLONAZEPAM. [Concomitant]
     Active Substance: CLONAZEPAM
  2. ALBUTEROL. [Concomitant]
     Active Substance: ALBUTEROL
  3. BUDESONIDE-FOMOTEROL [Concomitant]
  4. DULOXETINE. [Concomitant]
     Active Substance: DULOXETINE
  5. OXYCODONE AND ACETAMINOPHEN [Concomitant]
     Active Substance: ACETAMINOPHEN\OXYCODONE HYDROCHLORIDE
  6. METFORMIN [Concomitant]
     Active Substance: METFORMIN HYDROCHLORIDE
  7. ASPIRIN. [Concomitant]
     Active Substance: ASPIRIN
  8. IOSARTAN [Concomitant]
  9. CYCLOBENZAPRINE. [Concomitant]
     Active Substance: CYCLOBENZAPRINE
  10. FOLIC ACID. [Concomitant]
     Active Substance: FOLIC ACID
  11. MIRABEGRON [Concomitant]
     Active Substance: MIRABEGRON
  12. METOPROLOL TARTRATE. [Concomitant]
     Active Substance: METOPROLOL TARTRATE
  13. DOUCSATE SODIUM [Concomitant]
  14. CLONIDINE. [Concomitant]
     Active Substance: CLONIDINE
  15. TRAMADOL. [Concomitant]
     Active Substance: TRAMADOL
  16. ALPRAZOLAM. [Concomitant]
     Active Substance: ALPRAZOLAM
  17. MONTELUKAST [Concomitant]
     Active Substance: MONTELUKAST SODIUM
  18. FISH OIL [Concomitant]
     Active Substance: FISH OIL
  19. GAMMAPLEX [Suspect]
     Active Substance: HUMAN IMMUNOGLOBULIN G
     Indication: CHRONIC INFLAMMATORY DEMYELINATING POLYRADICULONEUROPATHY
     Route: 042
     Dates: start: 20170105, end: 20170310
  20. VITAMIN D3DIETARY SUPPLEMEN DIETARY SUPPLEMENT [Concomitant]
     Active Substance: ALPHA-TOCOPHEROL\CHOLECALCIFEROL
  21. HCTZ [Concomitant]
     Active Substance: HYDROCHLOROTHIAZIDE
  22. FERROUS SULFATE. [Concomitant]
     Active Substance: FERROUS SULFATE
  23. CALCIUM ACETATE. [Concomitant]
     Active Substance: CALCIUM ACETATE

REACTIONS (4)
  - Headache [Recovered/Resolved]
  - Rash pruritic [Unknown]
  - Hypertension [Recovered/Resolved]
  - Rash maculo-papular [Not Recovered/Not Resolved]
